FAERS Safety Report 17425144 (Version 1)
Quarter: 2020Q1

REPORT INFORMATION
  Report Type: Spontaneous
  Country: JP (occurrence: JP)
  Receive Date: 20200217
  Receipt Date: 20200217
  Transmission Date: 20200409
  Serious: Yes (Hospitalization)
  Sender: FDA-Public Use
  Company Number: JP-TEVA-2020-JP-001385J

PATIENT
  Age: 41 Year
  Sex: Female

DRUGS (5)
  1. ANEXATE [Concomitant]
     Active Substance: FLUMAZENIL
     Indication: REVERSAL OF SEDATION
     Dosage: .2 MILLIGRAM DAILY;
     Route: 042
     Dates: start: 20191228, end: 20191228
  2. CERCINE [Suspect]
     Active Substance: DIAZEPAM
     Indication: PREMEDICATION
  3. GASZYME [Concomitant]
     Indication: ENDOSCOPY UPPER GASTROINTESTINAL TRACT
     Dosage: DOSAGE IS UNKNOWN
     Route: 048
     Dates: start: 20191228, end: 20191228
  4. CERCINE [Suspect]
     Active Substance: DIAZEPAM
     Indication: ANXIETY
     Dosage: 5 MILLIGRAM DAILY;
     Route: 042
     Dates: start: 20191228, end: 20191228
  5. GASCON [Concomitant]
     Active Substance: DIMETHICONE
     Indication: ENDOSCOPY UPPER GASTROINTESTINAL TRACT
     Dosage: DOSAGE IS UNKNOWN
     Route: 048
     Dates: start: 20191228, end: 20191228

REACTIONS (3)
  - Product use in unapproved indication [Unknown]
  - Nausea [Recovered/Resolved]
  - Vomiting [Recovered/Resolved]

NARRATIVE: CASE EVENT DATE: 20191228
